FAERS Safety Report 8186260-2 (Version None)
Quarter: 2012Q1

REPORT INFORMATION
  Report Type: 
  Country: None (occurrence: None)
  Receive Date: 20120301
  Receipt Date: 20120217
  Transmission Date: 20120608
  Serious: Yes (Death)
  Sender: FDA-Public Use
  Company Number: EU-2011-10162

PATIENT
  Sex: Female

DRUGS (21)
  1. SAMSCA [Suspect]
     Indication: HYPONATRAEMIA
     Dosage: SEE IMAGE
     Route: 048
     Dates: start: 20101113, end: 20101115
  2. SAMSCA [Suspect]
     Indication: HYPONATRAEMIA
     Dosage: SEE IMAGE
     Route: 048
     Dates: start: 20101108, end: 20101109
  3. SAMSCA [Suspect]
     Indication: HYPONATRAEMIA
     Dosage: SEE IMAGE
     Route: 048
     Dates: start: 20101110, end: 20101112
  4. SAMSCA [Suspect]
     Indication: HYPONATRAEMIA
     Dosage: SEE IMAGE
     Route: 048
     Dates: start: 20101029, end: 20101103
  5. SAMSCA [Suspect]
     Indication: HYPONATRAEMIA
     Dosage: SEE IMAGE
     Route: 048
     Dates: start: 20101116, end: 20101118
  6. SAMSCA [Suspect]
     Indication: HYPONATRAEMIA
     Dosage: SEE IMAGE
     Route: 048
     Dates: start: 20101105, end: 20101105
  7. SAMSCA [Suspect]
     Indication: HYPONATRAEMIA
     Dosage: SEE IMAGE
     Route: 048
     Dates: start: 20101106, end: 20101108
  8. SAMSCA [Suspect]
     Indication: HYPONATRAEMIA
     Dosage: SEE IMAGE
     Route: 048
     Dates: start: 20101119, end: 20101127
  9. SPIRIVA [Concomitant]
  10. TAZOBACTAM [Concomitant]
  11. ASPIRIN [Concomitant]
  12. PREDNISOLON (PREDNISOLON) [Concomitant]
  13. FRAGMIN [Concomitant]
  14. UNACID (SULTAMICILLIN TOSILATE) [Concomitant]
  15. URSO FALK [Concomitant]
  16. ZOCOR [Concomitant]
  17. DOCITON (PROPRANOLOL HYDROCHLORIDE) [Concomitant]
  18. LEVOTHYROXINE SODIUM [Concomitant]
  19. SALINE (SALINE) [Concomitant]
  20. FUROSEMIDE [Concomitant]
  21. FLUTICASONE PROPIONATE/SALMETEROL [Concomitant]

REACTIONS (5)
  - HYPERKALAEMIA [None]
  - HYPOTHERMIA [None]
  - AGITATION [None]
  - URINARY TRACT INFECTION [None]
  - UROSEPSIS [None]
